FAERS Safety Report 5386871-3 (Version None)
Quarter: 2007Q3

REPORT INFORMATION
  Report Type: 
  Country: None (occurrence: None)
  Receive Date: 20070713
  Receipt Date: 20070705
  Transmission Date: 20080115
  Serious: Yes (Life-Threatening, Hospitalization, Disabling, Other)
  Sender: FDA-Public Use
  Company Number: PT-PFIZER INC-2007042255

PATIENT
  Sex: Female
  Weight: 85 kg

DRUGS (5)
  1. CHAMPIX [Suspect]
     Indication: EX-SMOKER
     Dosage: DAILY DOSE:1MG
     Route: 048
     Dates: start: 20070320, end: 20070522
  2. CHAMPIX [Suspect]
  3. THYRAX [Concomitant]
     Route: 048
     Dates: start: 19910101, end: 20070522
  4. CIPRALEX [Concomitant]
     Route: 048
     Dates: start: 20050101, end: 20070522
  5. PETIBELLE FILMTABLETTEN [Concomitant]
     Route: 048
     Dates: start: 20061201, end: 20070522

REACTIONS (3)
  - MALAISE [None]
  - PULMONARY EMBOLISM [None]
  - PULMONARY HYPERTENSION [None]
